FAERS Safety Report 10732913 (Version 10)
Quarter: 2015Q2

REPORT INFORMATION
  Report Type: Spontaneous
  Country: US (occurrence: US)
  Receive Date: 20150123
  Receipt Date: 20150616
  Transmission Date: 20150821
  Serious: Yes (Hospitalization, Disabling, Other)
  Sender: FDA-Public Use
  Company Number: US-009507513-1105USA02540

PATIENT
  Sex: Female
  Weight: 77.98 kg

DRUGS (8)
  1. FOSAMAX [Suspect]
     Active Substance: ALENDRONATE SODIUM
     Indication: OSTEOPOROSIS PROPHYLAXIS
     Dosage: UNK
     Route: 048
     Dates: start: 1998
  2. FOSAMAX [Suspect]
     Active Substance: ALENDRONATE SODIUM
     Indication: BONE DENSITY DECREASED
     Dosage: 35 MG, UNK
     Route: 048
     Dates: start: 20040506, end: 2009
  3. FOSAMAX [Suspect]
     Active Substance: ALENDRONATE SODIUM
     Indication: OSTEOPENIA
  4. FOSAMAX [Suspect]
     Active Substance: ALENDRONATE SODIUM
     Indication: OSTEOPOROSIS PROPHYLAXIS
     Dosage: UNK
     Route: 048
     Dates: start: 1998
  5. BONIVA [Suspect]
     Active Substance: IBANDRONATE SODIUM
     Indication: BONE DENSITY DECREASED
  6. FOSAMAX [Suspect]
     Active Substance: ALENDRONATE SODIUM
     Indication: OSTEOPENIA
  7. BONIVA [Suspect]
     Active Substance: IBANDRONATE SODIUM
     Indication: OSTEOPOROSIS PROPHYLAXIS
     Dosage: UNK
     Dates: start: 2008, end: 2009
  8. BONIVA [Suspect]
     Active Substance: IBANDRONATE SODIUM
     Indication: OSTEOPENIA

REACTIONS (42)
  - Humerus fracture [Unknown]
  - Spinal disorder [Unknown]
  - Temporomandibular joint syndrome [Unknown]
  - Bone cyst [Unknown]
  - Parkinson^s disease [Unknown]
  - Dizziness [Unknown]
  - Ovarian enlargement [Unknown]
  - Osteopenia [Unknown]
  - Femur fracture [Not Recovered/Not Resolved]
  - Osteoarthritis [Unknown]
  - Anaemia [Unknown]
  - Hypothyroidism [Unknown]
  - Arthralgia [Unknown]
  - Femur fracture [Unknown]
  - Intramedullary rod insertion [Unknown]
  - Intramedullary rod insertion [Unknown]
  - Osteoporosis [Not Recovered/Not Resolved]
  - Spinal osteoarthritis [Unknown]
  - Contusion [Unknown]
  - Stress fracture [Not Recovered/Not Resolved]
  - Bone loss [Unknown]
  - Varicose vein operation [Unknown]
  - Myelodysplastic syndrome [Unknown]
  - Ocular hyperaemia [Recovered/Resolved]
  - Internal fixation of fracture [Unknown]
  - Bone disorder [Not Recovered/Not Resolved]
  - Low turnover osteopathy [Not Recovered/Not Resolved]
  - Femur fracture [Not Recovered/Not Resolved]
  - Bone contusion [Unknown]
  - Synovial cyst [Unknown]
  - Hypoaesthesia [Unknown]
  - Tibia fracture [Unknown]
  - Bursitis [Unknown]
  - Faeces discoloured [Unknown]
  - Breast cancer [Unknown]
  - Thyroid disorder [Unknown]
  - Depression [Unknown]
  - Muscle strain [Unknown]
  - Back pain [Unknown]
  - Vertebral lesion [Unknown]
  - Radiculopathy [Unknown]
  - Vulvovaginal candidiasis [Unknown]

NARRATIVE: CASE EVENT DATE: 20020923
